FAERS Safety Report 8292411-1 (Version None)
Quarter: 2012Q2

REPORT INFORMATION
  Report Type: 
  Country: None (occurrence: None)
  Receive Date: 20120417
  Receipt Date: 20120412
  Transmission Date: 20120825
  Serious: Yes (Death, Hospitalization)
  Sender: FDA-Public Use
  Company Number: JP-PFIZER INC-2012029657

PATIENT
  Age: 77 Year
  Sex: Male

DRUGS (5)
  1. AZULFIDINE [Concomitant]
     Indication: RHEUMATOID ARTHRITIS
     Dosage: 1000 MG, 2X/DAY
     Route: 048
     Dates: start: 20080423, end: 20111203
  2. ETODOLAC [Concomitant]
     Indication: ULCER
     Dosage: 400 MG, 2X/DAY
     Route: 048
     Dates: start: 20110423, end: 20111203
  3. PREDNISOLONE [Concomitant]
     Dosage: 5 MG DAILY
     Route: 048
     Dates: start: 20110423, end: 20111203
  4. MUCOSTA [Concomitant]
     Indication: ULCER
     Dosage: UNK
     Route: 048
     Dates: start: 20110423, end: 20111130
  5. ENBREL [Suspect]
     Indication: RHEUMATOID ARTHRITIS
     Dosage: 25 MG, 2X/WEEK
     Route: 058
     Dates: start: 20080709, end: 20111130

REACTIONS (2)
  - PNEUMONIA [None]
  - RESPIRATORY FAILURE [None]
